FAERS Safety Report 7121041-X (Version None)
Quarter: 2010Q4

REPORT INFORMATION
  Report Type: 
  Country: None (occurrence: None)
  Receive Date: 20101124
  Receipt Date: 20100601
  Transmission Date: 20110411
  Serious: Yes (Congenital Anomaly, Other)
  Sender: FDA-Public Use
  Company Number: US-SANOFI-AVENTIS-2010SA070451

PATIENT
  Sex: Female

DRUGS (9)
  1. PLAVIX [Suspect]
     Route: 048
     Dates: start: 20070901
  2. PLAVIX [Suspect]
     Route: 048
  3. CADUET [Suspect]
     Dosage: 10 MG/40MG
     Route: 065
     Dates: start: 20070101
  4. ATORVASTATIN CALCIUM [Suspect]
     Route: 065
     Dates: start: 20070901
  5. ACETAMINOPHEN [Concomitant]
     Dates: start: 20070901
  6. ALL OTHER THERAPEUTIC PRODUCTS [Concomitant]
  7. TOPROL-XL [Concomitant]
  8. CAPOTEN [Concomitant]
  9. ISOSORBIDE DINITRATE [Concomitant]

REACTIONS (21)
  - ABASIA [None]
  - ACTIVITIES OF DAILY LIVING IMPAIRED [None]
  - ASTHENIA [None]
  - BLINDNESS [None]
  - BLINDNESS UNILATERAL [None]
  - BLOOD PRESSURE INCREASED [None]
  - COLD SWEAT [None]
  - EYE HAEMORRHAGE [None]
  - FALL [None]
  - FEELING DRUNK [None]
  - HEAT EXHAUSTION [None]
  - HEAT STROKE [None]
  - HYPERHIDROSIS [None]
  - MALAISE [None]
  - OCULAR VASCULAR DISORDER [None]
  - OPTIC ISCHAEMIC NEUROPATHY [None]
  - PAIN IN EXTREMITY [None]
  - READING DISORDER [None]
  - SYNCOPE [None]
  - VISION BLURRED [None]
  - VISUAL IMPAIRMENT [None]
